FAERS Safety Report 7452421-0 (Version None)
Quarter: 2011Q2

REPORT INFORMATION
  Report Type: 
  Country: None (occurrence: None)
  Receive Date: 20110502
  Receipt Date: 20100921
  Transmission Date: 20111010
  Serious: No
  Sender: FDA-Public Use
  Company Number: US-ASTRAZENECA-2010SE44693

PATIENT
  Age: 670 Month
  Sex: Female

DRUGS (4)
  1. NEXIUM [Suspect]
     Indication: GASTROOESOPHAGEAL REFLUX DISEASE
     Route: 048
  2. ACTOS [Concomitant]
  3. BIETA [Concomitant]
  4. VYTORIN [Concomitant]

REACTIONS (2)
  - GASTROINTESTINAL TRACT IRRITATION [None]
  - HEART RATE INCREASED [None]
